FAERS Safety Report 4692407-2 (Version None)
Quarter: 2005Q2

REPORT INFORMATION
  Report Type: 
  Country: None (occurrence: None)
  Receive Date: 20050616
  Receipt Date: 20050602
  Transmission Date: 20051028
  Serious: Yes (Other)
  Sender: FDA-Public Use
  Company Number: 200510360BNE

PATIENT
  Age: 8 Year
  Sex: Female
  Weight: 22 kg

DRUGS (2)
  1. CIPROFLOXACIN [Suspect]
     Indication: STERILISATION
     Dosage: 165 MG, BID
     Dates: start: 20050401, end: 20050410
  2. RANITIDINE [Concomitant]

REACTIONS (1)
  - HEPATIC FAILURE [None]
